FAERS Safety Report 5244367-3 (Version None)
Quarter: 2007Q1

REPORT INFORMATION
  Report Type: 
  Country: None (occurrence: None)
  Receive Date: 20070222
  Receipt Date: 20070214
  Transmission Date: 20070707
  Serious: Yes (Other)
  Sender: FDA-Public Use
  Company Number: US-JNJFOC-20070106826

PATIENT
  Sex: Female
  Weight: 108.41 kg

DRUGS (2)
  1. REMICADE [Suspect]
     Dosage: FOUR VIALS
     Route: 042
  2. REMICADE [Suspect]
     Indication: RHEUMATOID ARTHRITIS
     Dosage: FOUR VIALS
     Route: 042

REACTIONS (1)
  - GALLBLADDER DISORDER [None]
